FAERS Safety Report 9191193 (Version 1)
Quarter: 2013Q1

REPORT INFORMATION
  Report Type: Spontaneous
  Country: DE (occurrence: DE)
  Receive Date: 20130326
  Receipt Date: 20130326
  Transmission Date: 20140127
  Serious: Yes (Other)
  Sender: FDA-Public Use
  Company Number: DE-ROCHE-1205643

PATIENT
  Sex: Female

DRUGS (9)
  1. HERCEPTIN [Suspect]
     Indication: BREAST CANCER METASTATIC
     Route: 065
     Dates: start: 200711, end: 200812
  2. HERCEPTIN [Suspect]
     Route: 065
     Dates: start: 201204
  3. HERCEPTIN [Suspect]
     Route: 065
     Dates: start: 201003, end: 201010
  4. HERCEPTIN [Suspect]
     Route: 065
     Dates: start: 201106, end: 201212
  5. XELODA [Suspect]
     Indication: BREAST CANCER METASTATIC
     Route: 065
     Dates: start: 201003, end: 201105
  6. LAPATINIB [Concomitant]
     Indication: BREAST CANCER METASTATIC
     Route: 065
     Dates: start: 201010, end: 201105
  7. LAPATINIB [Concomitant]
     Route: 065
     Dates: start: 201204
  8. NAVELBINE [Concomitant]
     Indication: BREAST CANCER METASTATIC
     Route: 065
     Dates: start: 201106, end: 201110
  9. ERIBULIN [Concomitant]
     Indication: BREAST CANCER METASTATIC
     Route: 065
     Dates: start: 201201, end: 201203

REACTIONS (1)
  - Neoplasm malignant [Not Recovered/Not Resolved]
